FAERS Safety Report 11468162 (Version 1)
Quarter: 2015Q3

REPORT INFORMATION
  Report Type: Spontaneous
  Country: GB (occurrence: GB)
  Receive Date: 20150908
  Receipt Date: 20150908
  Transmission Date: 20151125
  Serious: Yes (Life-Threatening, Other)
  Sender: FDA-Public Use
  Company Number: GB-FRESENIUS KABI-FK201504243

PATIENT
  Age: 37 Year
  Sex: Female
  Weight: 101 kg

DRUGS (7)
  1. CARBOPROST [Suspect]
     Active Substance: CARBOPROST
     Indication: CAESAREAN SECTION
     Route: 030
     Dates: start: 20150802, end: 20150802
  2. OXYTOCIN. [Concomitant]
     Active Substance: OXYTOCIN
     Indication: CAESAREAN SECTION
     Route: 042
     Dates: start: 20150802, end: 20150802
  3. CEFUROXIME (MANUFACTURER UNKNOWN) [Suspect]
     Active Substance: CEFUROXIME
     Indication: CAESAREAN SECTION
     Route: 042
     Dates: start: 20150802, end: 20150802
  4. MISOPROSTOL. [Concomitant]
     Active Substance: MISOPROSTOL
     Indication: CAESAREAN SECTION
     Route: 054
     Dates: start: 20150802, end: 20150802
  5. ONDANSETRON [Concomitant]
     Active Substance: ONDANSETRON
     Indication: CAESAREAN SECTION
     Route: 042
     Dates: start: 20150802, end: 20150802
  6. METRONIDAZOLE. [Suspect]
     Active Substance: METRONIDAZOLE
     Indication: CAESAREAN SECTION
     Route: 042
     Dates: start: 20150802, end: 20150802
  7. SYNTOMETRINE [Concomitant]
     Active Substance: ERGONOVINE\OXYTOCIN
     Indication: CAESAREAN SECTION
     Route: 030
     Dates: start: 20150802, end: 20150802

REACTIONS (1)
  - Anaphylactic reaction [Recovered/Resolved]

NARRATIVE: CASE EVENT DATE: 20150802
